FAERS Safety Report 16663351 (Version 1)
Quarter: 2019Q3

REPORT INFORMATION
  Report Type: Spontaneous
  Country: BE (occurrence: BE)
  Receive Date: 20190802
  Receipt Date: 20190802
  Transmission Date: 20191004
  Serious: No
  Sender: FDA-Public Use
  Company Number: BE-EXELIXIS-CABO-19020870

PATIENT
  Sex: Female

DRUGS (2)
  1. CABOMETYX [Suspect]
     Active Substance: CABOZANTINIB S-MALATE
     Indication: METASTATIC RENAL CELL CARCINOMA
     Dosage: 20 MG, QD
     Dates: start: 201812
  2. CABOMETYX [Suspect]
     Active Substance: CABOZANTINIB S-MALATE
     Dosage: UNK (DAY 1 :20 MG DAY 2 :40 MG)

REACTIONS (4)
  - Oedema peripheral [Unknown]
  - Skin ulcer [Unknown]
  - Proteinuria [Unknown]
  - Malignant neoplasm progression [Unknown]
